FAERS Safety Report 16844771 (Version 1)
Quarter: 2019Q3

REPORT INFORMATION
  Report Type: Report from Study
  Country: AU (occurrence: AU)
  Receive Date: 20190924
  Receipt Date: 20190924
  Transmission Date: 20191005
  Serious: Yes (Other)
  Sender: FDA-Public Use
  Company Number: PHHY2019AU220204

PATIENT
  Sex: Female

DRUGS (1)
  1. ACLASTA [Suspect]
     Active Substance: ZOLEDRONIC ACID
     Indication: PRODUCT USED FOR UNKNOWN INDICATION
     Dosage: UNK
     Route: 065

REACTIONS (7)
  - Affective disorder [Unknown]
  - Deafness bilateral [Unknown]
  - Influenza like illness [Unknown]
  - Eye inflammation [Unknown]
  - Chills [Unknown]
  - Feeling of body temperature change [Unknown]
  - Breast cancer [Unknown]
